FAERS Safety Report 4971741-2 (Version None)
Quarter: 2006Q2

REPORT INFORMATION
  Report Type: 
  Country: None (occurrence: None)
  Receive Date: 20060406
  Receipt Date: 20060324
  Transmission Date: 20061013
  Serious: Yes (Death)
  Sender: FDA-Public Use
  Company Number: 13588

PATIENT
  Age: 74 Year
  Sex: Male

DRUGS (5)
  1. CLOFARABINE [Suspect]
     Indication: ACUTE MYELOID LEUKAEMIA
     Dosage: 26 MG QD X 5 IV
     Route: 042
     Dates: start: 20050418, end: 20050422
  2. CYCLIZINE [Concomitant]
  3. ACYCLOVIR [Concomitant]
  4. LANSOPRAZOLE [Concomitant]
  5. ALLOPURINOL [Concomitant]

REACTIONS (12)
  - BLOOD PRESSURE DIASTOLIC DECREASED [None]
  - BODY TEMPERATURE DECREASED [None]
  - CAPILLARY LEAK SYNDROME [None]
  - CELLULITIS [None]
  - COLLAPSE OF LUNG [None]
  - HEART RATE INCREASED [None]
  - HYPOTENSION [None]
  - INFECTION [None]
  - NEUTROPENIC SEPSIS [None]
  - RENAL FAILURE ACUTE [None]
  - RESPIRATORY FAILURE [None]
  - SYSTEMIC INFLAMMATORY RESPONSE SYNDROME [None]
